FAERS Safety Report 10057876 (Version 2)
Quarter: 2014Q2

REPORT INFORMATION
  Report Type: Report from Study
  Country: US (occurrence: US)
  Receive Date: 20140404
  Receipt Date: 20140404
  Transmission Date: 20141212
  Serious: Yes (Life-Threatening, Hospitalization, Other)
  Sender: FDA-Public Use
  Company Number: US-ROCHE-1279120

PATIENT
  Age: 50 Year
  Sex: Female
  Weight: 81.72 kg

DRUGS (26)
  1. ACTEMRA [Suspect]
     Indication: RHEUMATOID ARTHRITIS
     Dosage: LAST DOSE PRIOR TO SAE: 600 MG
     Route: 042
     Dates: start: 201305
  2. ACTEMRA [Suspect]
     Route: 042
     Dates: start: 201306
  3. ACTEMRA [Suspect]
     Route: 042
     Dates: start: 20130723
  4. ACTEMRA [Suspect]
     Route: 042
     Dates: start: 20131031
  5. ACTEMRA [Suspect]
     Route: 042
     Dates: start: 20131209
  6. ACTEMRA [Suspect]
     Dosage: ON 04/MAR/2014 OR 05/MAR/2014
     Route: 042
  7. NAPROXEN [Suspect]
     Indication: PRODUCT USED FOR UNKNOWN INDICATION
     Route: 048
  8. NAPROXEN [Suspect]
     Route: 048
  9. ALEVE [Concomitant]
     Dosage: DOSE: 2 TABS
     Route: 050
  10. METHOTREXATE [Concomitant]
     Dosage: 4 TAB
     Route: 048
  11. OXYCODONE [Concomitant]
     Dosage: DOSE: 7.5-325
     Route: 065
  12. ASA [Concomitant]
     Route: 048
  13. FOLIC ACID [Concomitant]
     Dosage: QD
     Route: 065
  14. TRAZODONE HCL [Concomitant]
     Dosage: BED TIME
     Route: 065
  15. HYDROCHLOROTHIAZIDE [Concomitant]
  16. GABAPENTIN [Concomitant]
     Route: 065
  17. LIPITOR [Concomitant]
     Route: 065
  18. LIPITOR [Concomitant]
     Route: 065
     Dates: start: 201305
  19. LIPITOR [Concomitant]
     Route: 065
     Dates: start: 20140101
  20. LISINOPRIL [Concomitant]
     Route: 065
  21. LISINOPRIL [Concomitant]
     Route: 048
  22. TOPROL XL [Concomitant]
     Route: 065
  23. PLAVIX [Concomitant]
     Route: 065
  24. RANITIDINE [Concomitant]
     Route: 065
  25. SUMATRIPTAN [Concomitant]
     Dosage: QD
     Route: 065
  26. PERCOCET [Concomitant]
     Route: 065

REACTIONS (9)
  - Myocardial infarction [Unknown]
  - Blood cholesterol increased [Not Recovered/Not Resolved]
  - Liver function test abnormal [Unknown]
  - Hypotension [Unknown]
  - Back pain [Unknown]
  - Pain in extremity [Unknown]
  - Pain in extremity [Unknown]
  - Pain in extremity [Unknown]
  - Arthralgia [Unknown]
